FAERS Safety Report 10866584 (Version 1)
Quarter: 2015Q1

REPORT INFORMATION
  Report Type: Spontaneous
  Country: US (occurrence: None)
  Receive Date: 20150220
  Receipt Date: 20150220
  Transmission Date: 20150721
  Serious: Yes (Death, Hospitalization, Congenital Anomaly)
  Sender: FDA-Public Use
  Company Number: None

PATIENT
  Age: 1 Day
  Sex: Male
  Weight: 3.18 kg

DRUGS (1)
  1. ZOFRAN [Suspect]
     Active Substance: ONDANSETRON HYDROCHLORIDE
     Indication: HYPEREMESIS GRAVIDARUM
     Dosage: PILLS AND A CONTINUOUS PUMP
     Dates: start: 20100301, end: 20100827

REACTIONS (4)
  - Hydrops foetalis [None]
  - Nephrolithiasis [None]
  - Foetal exposure during pregnancy [None]
  - Renal impairment neonatal [None]

NARRATIVE: CASE EVENT DATE: 20100827
